FAERS Safety Report 23427819 (Version 1)
Quarter: 2024Q1

REPORT INFORMATION
  Report Type: Spontaneous
  Country: IN (occurrence: IN)
  Receive Date: 20240122
  Receipt Date: 20240122
  Transmission Date: 20240409
  Serious: Yes (Death, Hospitalization)
  Sender: FDA-Public Use
  Company Number: IN-MYLANLABS-2024M1005783

PATIENT
  Sex: Male

DRUGS (2)
  1. HEPARIN [Suspect]
     Active Substance: HEPARIN SODIUM
     Indication: Thrombolysis
     Dosage: UNK
     Route: 065
  2. STREPTOKINASE [Suspect]
     Active Substance: STREPTOKINASE
     Indication: Thrombolysis
     Dosage: UNK
     Route: 065

REACTIONS (3)
  - Retroperitoneal haemorrhage [Fatal]
  - Haemorrhage intracranial [Fatal]
  - Cardiac arrest [Fatal]
